FAERS Safety Report 9441841 (Version 1)
Quarter: 2013Q3

REPORT INFORMATION
  Report Type: Spontaneous
  Country: SE (occurrence: SE)
  Receive Date: 20130806
  Receipt Date: 20130806
  Transmission Date: 20140515
  Serious: Yes (Other)
  Sender: FDA-Public Use
  Company Number: SE-AMGEN-SWESP2013054713

PATIENT
  Age: 16 Year
  Sex: Male

DRUGS (12)
  1. ENBREL [Suspect]
     Indication: PRODUCT USED FOR UNKNOWN INDICATION
     Dosage: 50 MG, UNK
     Route: 058
     Dates: start: 2009
  2. ENBREL [Suspect]
     Dosage: 50 MG, UNK
     Route: 065
     Dates: start: 201212
  3. PANDEMRIX [Suspect]
     Indication: PRODUCT USED FOR UNKNOWN INDICATION
     Dosage: UNK
     Route: 065
     Dates: start: 2009
  4. NEURONTIN [Concomitant]
     Dosage: UNK
  5. DUROGESIC [Concomitant]
     Dosage: UNK
  6. MELATONIN [Concomitant]
     Dosage: UNK
  7. OMEPRAZOL                          /00661201/ [Concomitant]
     Dosage: UNK
  8. FOLACIN                            /00024201/ [Concomitant]
     Dosage: UNK
  9. LEVAXIN [Concomitant]
     Dosage: UNK
  10. METHOTREXATE [Concomitant]
     Dosage: UNK
  11. ALVEDON [Concomitant]
     Dosage: UNK
  12. BREXIDOL                           /00500404/ [Concomitant]
     Dosage: UNK

REACTIONS (2)
  - Visual acuity reduced [Recovered/Resolved]
  - Post viral fatigue syndrome [Unknown]
